FAERS Safety Report 15649492 (Version 2)
Quarter: 2019Q1

REPORT INFORMATION
  Report Type: Spontaneous
  Country: FR (occurrence: FR)
  Receive Date: 20181122
  Receipt Date: 20190114
  Transmission Date: 20190417
  Serious: Yes (Other)
  Sender: FDA-Public Use
  Company Number: FR-009507513-1811FRA006990

PATIENT
  Age: 66 Year
  Sex: Male
  Weight: 98 kg

DRUGS (6)
  1. ATACAND [Concomitant]
     Active Substance: CANDESARTAN CILEXETIL
     Indication: HYPERTENSION
     Dosage: 1 TABLET DAILY (STRENGTH 4 MG)
     Route: 048
  2. NOVO-NORM [Concomitant]
     Active Substance: REPAGLINIDE
     Indication: DIABETES MELLITUS
     Dosage: 3 TABLETS DAILY (STRENGTH 0.5 MG)
     Route: 048
  3. ADENURIC [Concomitant]
     Active Substance: FEBUXOSTAT
     Indication: HYPERURICAEMIA
     Dosage: 1 TABLET DAILY, (STRENGTH 80 MG)
     Route: 048
  4. LIPTRUZET [Suspect]
     Active Substance: ATORVASTATIN CALCIUM\EZETIMIBE
     Indication: HYPERTRIGLYCERIDAEMIA
  5. SEROPLEX [Concomitant]
     Active Substance: ESCITALOPRAM OXALATE
     Indication: DEPRESSION
     Dosage: 1 TABLET DAILY (STRENGTH 10 MG)
     Route: 048
  6. LIPTRUZET [Suspect]
     Active Substance: ATORVASTATIN CALCIUM\EZETIMIBE
     Indication: HYPERCHOLESTEROLAEMIA
     Dosage: 1 TABLET DAILY PERO OS
     Route: 048
     Dates: start: 20180727, end: 20181031

REACTIONS (5)
  - Hepatic failure [Unknown]
  - Cholestasis [Recovering/Resolving]
  - Purpura [Recovered/Resolved]
  - Hepatocellular injury [Recovered/Resolved]
  - Thrombocytopenia [Not Recovered/Not Resolved]

NARRATIVE: CASE EVENT DATE: 2018
